FAERS Safety Report 5104894-6 (Version None)
Quarter: 2006Q3

REPORT INFORMATION
  Report Type: 
  Country: None (occurrence: None)
  Receive Date: 20060914
  Receipt Date: 20060904
  Transmission Date: 20061208
  Serious: Yes (Hospitalization)
  Sender: FDA-Public Use
  Company Number: JP-ROCHE-461898

PATIENT
  Age: 42 Year
  Sex: Male

DRUGS (11)
  1. PANALDINE [Suspect]
     Indication: MYOCARDIAL INFARCTION
     Route: 048
     Dates: start: 20060719, end: 20060730
  2. DIOVAN [Concomitant]
     Route: 048
  3. PRAVASTATIN SODIUM [Concomitant]
     Route: 048
  4. MESITAT [Concomitant]
     Route: 048
  5. BAYASPIRIN [Concomitant]
     Route: 048
  6. AMLODIN [Concomitant]
     Route: 048
  7. ENZYMES [Concomitant]
  8. OMEPRAZOLE [Concomitant]
  9. LOXONIN [Concomitant]
  10. CLEANAL [Concomitant]
  11. LACTOBACILLUS BIFIDUS, LYOPHILIZED [Concomitant]
     Route: 048

REACTIONS (3)
  - ERYTHEMA MULTIFORME [None]
  - PHARYNGOLARYNGEAL DISCOMFORT [None]
  - RASH PRURITIC [None]
